FAERS Safety Report 8431638-2 (Version None)
Quarter: 2012Q2

REPORT INFORMATION
  Report Type: 
  Country: None (occurrence: None)
  Receive Date: 20120613
  Receipt Date: 20111024
  Transmission Date: 20120825
  Serious: No
  Sender: FDA-Public Use
  Company Number: US-GLAXOSMITHKLINE-A0950272A

PATIENT
  Sex: Female

DRUGS (1)
  1. TREXIMET [Suspect]
     Indication: MIGRAINE
     Route: 065

REACTIONS (1)
  - OVERDOSE [None]
